FAERS Safety Report 25345760 (Version 2)
Quarter: 2025Q3

REPORT INFORMATION
  Report Type: Report from Study
  Country: US (occurrence: US)
  Receive Date: 20250522
  Receipt Date: 20250710
  Transmission Date: 20251020
  Serious: No
  Sender: TRAVERE THERAPEUTICS
  Company Number: US-TRAVERE-2025TVT00532

PATIENT
  Age: 60 Year
  Sex: Male

DRUGS (19)
  1. FILSPARI [Suspect]
     Active Substance: SPARSENTAN
     Indication: IgA nephropathy
     Route: 048
     Dates: start: 20250309
  2. FILSPARI [Suspect]
     Active Substance: SPARSENTAN
     Indication: Essential hypertension
  3. FILSPARI [Suspect]
     Active Substance: SPARSENTAN
     Indication: Glomerulonephritis rapidly progressive
  4. FILSPARI [Suspect]
     Active Substance: SPARSENTAN
     Indication: Acute kidney injury
  5. FILSPARI [Suspect]
     Active Substance: SPARSENTAN
     Indication: Immunosuppression
  6. BACTRIM [Concomitant]
     Active Substance: SULFAMETHOXAZOLE\TRIMETHOPRIM
  7. DAPAGLIFLOZIN [Concomitant]
     Active Substance: DAPAGLIFLOZIN
  8. ZYRTEC [Concomitant]
     Active Substance: CETIRIZINE HYDROCHLORIDE
  9. PEPCID [Concomitant]
     Active Substance: FAMOTIDINE
  10. PREDNISONE [Concomitant]
     Active Substance: PREDNISONE
  11. LEVOTHYROXINE [Concomitant]
     Active Substance: LEVOTHYROXINE
  12. TORSEMIDE [Concomitant]
     Active Substance: TORSEMIDE
  13. Citracal plus D [Concomitant]
  14. FLONASE [Concomitant]
     Active Substance: FLUTICASONE PROPIONATE
  15. ASCORBIC ACID\BIOTIN\CALCIUM PANTOTHENATE\CYANOCOBALAMIN\FOLIC ACID\NI [Concomitant]
     Active Substance: ASCORBIC ACID\BIOTIN\CALCIUM PANTOTHENATE\CYANOCOBALAMIN\FOLIC ACID\NIACINAMIDE\PYRIDOXINE HYDROCHLO
  16. NYSTATIN [Concomitant]
     Active Substance: NYSTATIN
  17. VITAMIN E [Concomitant]
     Active Substance: .ALPHA.-TOCOPHEROL
  18. WEGOVY [Concomitant]
     Active Substance: SEMAGLUTIDE
  19. ROSUVASTATIN [Concomitant]
     Active Substance: ROSUVASTATIN

REACTIONS (17)
  - Urine protein/creatinine ratio increased [Unknown]
  - Blood creatinine increased [None]
  - Blood triglycerides increased [Unknown]
  - High density lipoprotein decreased [Unknown]
  - C-reactive protein increased [Unknown]
  - Ventricular extrasystoles [Unknown]
  - Heart valve incompetence [Unknown]
  - Red blood cell count decreased [Unknown]
  - Haemoglobin decreased [Unknown]
  - Haematocrit decreased [Unknown]
  - Glomerular filtration rate decreased [Unknown]
  - Blood urea nitrogen/creatinine ratio decreased [Unknown]
  - Urine albumin/creatinine ratio increased [Unknown]
  - Blood phosphorus decreased [Unknown]
  - Weight increased [Unknown]
  - Hypertension [Unknown]
  - Furuncle [Unknown]

NARRATIVE: CASE EVENT DATE: 20250318
